FAERS Safety Report 6853639-8 (Version None)
Quarter: 2010Q3

REPORT INFORMATION
  Report Type: 
  Country: None (occurrence: None)
  Receive Date: 20100717
  Receipt Date: 20071214
  Transmission Date: 20110219
  Serious: No
  Sender: FDA-Public Use
  Company Number: US-PFIZER INC-2007106261

PATIENT
  Age: 40 Year
  Sex: Male
  Weight: 81.818 kg

DRUGS (2)
  1. CHANTIX [Suspect]
     Indication: SMOKING CESSATION THERAPY
  2. ATRIPLA [Concomitant]

REACTIONS (1)
  - URINE ANALYSIS ABNORMAL [None]
